FAERS Safety Report 19028891 (Version 2)
Quarter: 2021Q1

REPORT INFORMATION
  Report Type: Spontaneous
  Country: FR (occurrence: FR)
  Receive Date: 20210319
  Receipt Date: 20210326
  Transmission Date: 20210420
  Serious: Yes (Other)
  Sender: FDA-Public Use
  Company Number: FR-ALK-ABELLO A/S-2021AA000937

PATIENT

DRUGS (1)
  1. ACARIZAX [Suspect]
     Active Substance: DERMATOPHAGOIDES FARINAE\DERMATOPHAGOIDES PTERONYSSINUS
     Indication: RHINITIS
     Route: 060

REACTIONS (4)
  - Local reaction [Unknown]
  - Oral discomfort [Unknown]
  - Ophthalmic herpes zoster [Recovering/Resolving]
  - Dermatitis exfoliative generalised [Recovered/Resolved]
